FAERS Safety Report 4838297-6 (Version None)
Quarter: 2005Q4

REPORT INFORMATION
  Report Type: 
  Country: None (occurrence: None)
  Receive Date: 20051123
  Receipt Date: 20050929
  Transmission Date: 20060501
  Serious: Yes (Other)
  Sender: FDA-Public Use
  Company Number: PHHO2004JP12532

PATIENT
  Age: 88 Year
  Sex: Female
  Weight: 36.0156 kg

DRUGS (10)
  1. VISUDYNE [Suspect]
     Indication: MACULAR DEGENERATION
     Dosage: 3.6 ML DAILY IV
     Route: 042
     Dates: start: 20040820, end: 20040820
  2. ASPIRIN [Concomitant]
  3. RENIVACE [Concomitant]
  4. EPINEPHRINE [Concomitant]
  5. ZANTAC [Concomitant]
  6. KOLANTYL [Concomitant]
  7. MYONAL [Concomitant]
  8. SELOKEN [Concomitant]
  9. FRANDOL [Concomitant]
  10. AMLODIPINE BESYLATE [Concomitant]

REACTIONS (1)
  - ANGINA UNSTABLE [None]
